FAERS Safety Report 10337959 (Version 1)
Quarter: 2014Q3

REPORT INFORMATION
  Report Type: Spontaneous
  Country: US (occurrence: US)
  Receive Date: 20140724
  Receipt Date: 20140724
  Transmission Date: 20150326
  Serious: Yes (Other)
  Sender: FDA-Public Use
  Company Number: US-ROCHE-1435568

PATIENT
  Sex: Female

DRUGS (8)
  1. XOLAIR [Suspect]
     Active Substance: OMALIZUMAB
     Indication: PRODUCT USED FOR UNKNOWN INDICATION
     Dosage: TWO SHOT ON HER LEFT ARM AND ONE SHOT ON HER RIGHT ARM
     Route: 058
     Dates: start: 20140523
  2. ATROVENT [Concomitant]
     Active Substance: IPRATROPIUM BROMIDE
  3. XOLAIR [Suspect]
     Active Substance: OMALIZUMAB
     Dosage: TWO SHOT ON HER LEFT ARM AND ONE SHOT ON HER RIGHT ARM
     Route: 058
  4. XOLAIR [Suspect]
     Active Substance: OMALIZUMAB
     Dosage: TWO SHOT ON HER LEFT ARM AND ONE SHOT ON HER RIGHT ARM
     Route: 058
  5. XOLAIR [Suspect]
     Active Substance: OMALIZUMAB
     Dosage: TWO SHOT ON HER LEFT ARM AND ONE SHOT ON HER RIGHT ARM
     Route: 058
  6. DULERA [Concomitant]
     Active Substance: FORMOTEROL FUMARATE DIHYDRATE\MOMETASONE FUROATE
  7. ALBUTEROL NEBULIZER [Concomitant]
     Active Substance: ALBUTEROL
  8. PREDNISONE. [Concomitant]
     Active Substance: PREDNISONE

REACTIONS (10)
  - Nausea [Unknown]
  - Fall [Unknown]
  - No therapeutic response [Unknown]
  - Parotid gland enlargement [Unknown]
  - Dizziness [Unknown]
  - Pain [Unknown]
  - Temperature intolerance [Unknown]
  - Arthralgia [Unknown]
  - Malaise [Unknown]
  - Fatigue [Unknown]
